FAERS Safety Report 14108749 (Version 2)
Quarter: 2017Q4

REPORT INFORMATION
  Report Type: Not Available
  Country: US (occurrence: US)
  Receive Date: 20171019
  Receipt Date: 20171201
  Transmission Date: 20180321
  Serious: No
  Sender: FDA-Public Use
  Company Number: US-NEUROCRINE BIOSCIENCES INC.-2017NBI00769

PATIENT
  Sex: Male
  Weight: 115.32 kg

DRUGS (8)
  1. RISPERIDONE. [Concomitant]
     Active Substance: RISPERIDONE
  2. RISPERIDONE. [Concomitant]
     Active Substance: RISPERIDONE
  3. METOPROLOL. [Concomitant]
     Active Substance: METOPROLOL
  4. SEROQUEL [Concomitant]
     Active Substance: QUETIAPINE FUMARATE
  5. LISINOPRIL. [Concomitant]
     Active Substance: LISINOPRIL
  6. INGREZZA [Suspect]
     Active Substance: VALBENAZINE
     Indication: TARDIVE DYSKINESIA
     Route: 048
     Dates: start: 20170713, end: 20170719
  7. COGENTIN [Concomitant]
     Active Substance: BENZTROPINE MESYLATE
  8. INGREZZA [Suspect]
     Active Substance: VALBENAZINE
     Route: 048
     Dates: start: 20170720, end: 20171019

REACTIONS (3)
  - Constipation [Unknown]
  - Nausea [Unknown]
  - Vomiting [Unknown]

NARRATIVE: CASE EVENT DATE: 2017
